FAERS Safety Report 8043354-X (Version None)
Quarter: 2012Q1

REPORT INFORMATION
  Report Type: 
  Country: None (occurrence: None)
  Receive Date: 20120112
  Receipt Date: 20101005
  Transmission Date: 20120608
  Serious: Yes (Hospitalization, Other)
  Sender: FDA-Public Use
  Company Number: FR-ABBOTT-10P-056-0676139-00

PATIENT
  Sex: Female

DRUGS (4)
  1. TIMOLOL MALEATE [Suspect]
     Indication: GLAUCOMA
     Route: 031
     Dates: end: 20100913
  2. TARKA [Suspect]
     Indication: HYPERTENSION
     Dates: end: 20100913
  3. DIGOXIN [Suspect]
     Indication: PRODUCT USED FOR UNKNOWN INDICATION
     Route: 048
     Dates: end: 20100913
  4. METFORMIN HCL [Concomitant]
     Indication: DIABETES MELLITUS

REACTIONS (5)
  - ATRIOVENTRICULAR BLOCK SECOND DEGREE [None]
  - GENERAL PHYSICAL HEALTH DETERIORATION [None]
  - RENAL FAILURE [None]
  - OVERDOSE [None]
  - WEIGHT DECREASED [None]
